FAERS Safety Report 8044983-X (Version None)
Quarter: 2012Q1

REPORT INFORMATION
  Report Type: 
  Country: None (occurrence: None)
  Receive Date: 20120113
  Receipt Date: 20120107
  Transmission Date: 20120608
  Serious: Yes (Death, Life-Threatening, Hospitalization)
  Sender: FDA-Public Use
  Company Number: US-ROCHE-1029064

PATIENT
  Age: 60 Year
  Sex: Male
  Weight: 52.7 kg

DRUGS (3)
  1. AVASTIN [Suspect]
     Indication: METASTATIC NEOPLASM
     Route: 042
     Dates: start: 20111024
  2. DOCETAXEL [Suspect]
     Indication: METASTATIC NEOPLASM
     Route: 042
     Dates: start: 20111024
  3. CISPLATIN [Suspect]
     Indication: METASTATIC NEOPLASM
     Route: 042
     Dates: start: 20111024

REACTIONS (4)
  - PSEUDOMONAS INFECTION [None]
  - PNEUMOTHORAX [None]
  - LUNG INFECTION [None]
  - RESPIRATORY FAILURE [None]
